FAERS Safety Report 5158659-X (Version None)
Quarter: 2006Q4

REPORT INFORMATION
  Report Type: 
  Country: None (occurrence: None)
  Receive Date: 20061128
  Receipt Date: 20061120
  Transmission Date: 20070319
  Serious: Yes (Life-Threatening)
  Sender: FDA-Public Use
  Company Number: 2006CG01895

PATIENT
  Age: 1 Day
  Sex: Male

DRUGS (3)
  1. ZOMIG [Suspect]
     Route: 064
  2. ACETAMINOPHEN W/ PROPOXYPHENE HCL [Suspect]
     Route: 064
  3. SUBUTEX [Concomitant]
     Route: 064
     Dates: start: 20060201, end: 20060907

REACTIONS (5)
  - BRADYCARDIA FOETAL [None]
  - DRUG EXPOSURE DURING PREGNANCY [None]
  - PNEUMOMEDIASTINUM [None]
  - PNEUMOTHORAX [None]
  - RESPIRATORY DISTRESS [None]
